FAERS Safety Report 7421335-4 (Version None)
Quarter: 2011Q2

REPORT INFORMATION
  Report Type: 
  Country: None (occurrence: None)
  Receive Date: 20110418
  Receipt Date: 20110407
  Transmission Date: 20111010
  Serious: Yes (Hospitalization, Other)
  Sender: FDA-Public Use
  Company Number: BR-ASTRAZENECA-2011SE20238

PATIENT
  Age: 81 Year
  Sex: Male
  Weight: 79 kg

DRUGS (12)
  1. SPLENDIL [Suspect]
     Indication: HYPERTENSION
     Route: 048
     Dates: start: 20060101, end: 20110201
  2. BIMATOPROST AND TIMOLOL MALEATE [Concomitant]
     Indication: GLAUCOMA
     Route: 031
     Dates: start: 20080101
  3. PROPRANOLOL [Concomitant]
     Indication: HYPERTENSION
     Route: 048
     Dates: start: 20010101
  4. GALVUS [Concomitant]
     Indication: DIABETES MELLITUS
     Route: 048
     Dates: start: 20080101
  5. MANIPULATED OMEPRAZOLE FORMULA [Concomitant]
     Indication: PROPHYLAXIS
     Route: 048
     Dates: start: 20060101
  6. ADEROGIL [Concomitant]
     Indication: HYPOVITAMINOSIS
     Route: 048
     Dates: start: 20090101
  7. METFORMIN HYDROCHLORIDE [Concomitant]
     Indication: DIABETES MELLITUS
     Route: 048
     Dates: start: 20030101, end: 20080101
  8. FRESH TEARS [Concomitant]
     Indication: CATARACT
     Route: 031
     Dates: start: 20080101
  9. SIMVASTATIN [Concomitant]
     Indication: HYPERCHOLESTEROLAEMIA
     Route: 048
     Dates: start: 20040101, end: 20090101
  10. ZINC [Concomitant]
     Indication: HYPOVITAMINOSIS
     Route: 048
     Dates: start: 20090101
  11. SPLENDIL [Suspect]
     Route: 048
     Dates: start: 20110201
  12. MONOCORDIL [Concomitant]
     Indication: HYPERTENSION
     Route: 048
     Dates: start: 20060101

REACTIONS (6)
  - BLOOD GLUCOSE ABNORMAL [None]
  - ARTHRALGIA [None]
  - GLAUCOMA [None]
  - FATIGUE [None]
  - HYPOVITAMINOSIS [None]
  - CATARACT [None]
